FAERS Safety Report 6850012-3 (Version None)
Quarter: 2010Q3

REPORT INFORMATION
  Report Type: 
  Country: None (occurrence: None)
  Receive Date: 20100716
  Receipt Date: 20071010
  Transmission Date: 20110219
  Serious: No
  Sender: FDA-Public Use
  Company Number: US-PFIZER INC-2007086082

PATIENT
  Sex: Female
  Weight: 54.545 kg

DRUGS (7)
  1. CHANTIX [Suspect]
     Indication: SMOKING CESSATION THERAPY
     Dates: start: 20070101
  2. LEXAPRO [Concomitant]
  3. ALTACE [Concomitant]
  4. ACETYLSALICYLIC ACID [Concomitant]
  5. ENTOCORT EC [Concomitant]
  6. FLEXERIL [Concomitant]
  7. REGLAN [Concomitant]

REACTIONS (1)
  - FATIGUE [None]
